FAERS Safety Report 13350918 (Version 3)
Quarter: 2018Q1

REPORT INFORMATION
  Report Type: Spontaneous
  Country: US (occurrence: US)
  Receive Date: 20170320
  Receipt Date: 20180322
  Transmission Date: 20180508
  Serious: No
  Sender: FDA-Public Use
  Company Number: US-PFIZER INC-2016565891

PATIENT
  Age: 79 Year
  Sex: Female

DRUGS (23)
  1. CHROMIUM [Concomitant]
     Active Substance: CHROMIC CHLORIDE\CHROMIUM
     Dosage: 1000 UG, UNK
  2. LISINOPRIL. [Concomitant]
     Active Substance: LISINOPRIL
     Dosage: 5 MG, UNK
  3. MELOXICAM. [Concomitant]
     Active Substance: MELOXICAM
     Dosage: 7.5 MG, UNK
  4. IBRANCE [Suspect]
     Active Substance: PALBOCICLIB
     Indication: BREAST CANCER FEMALE
     Dosage: 125 MG, UNK
     Dates: start: 20161122
  5. BIOTIN [Concomitant]
     Active Substance: BIOTIN
     Dosage: 1000 UG, UNK
  6. CINNAMON. [Concomitant]
     Active Substance: CINNAMON
     Dosage: 500 MG, UNK
  7. GAMMA-LINOLENIC ACID [Concomitant]
     Dosage: UNK
  8. IBRANCE [Suspect]
     Active Substance: PALBOCICLIB
     Dosage: 100 MG, CYCLIC (ONCE DAILY WITH FOOD FOR 21 DAYS, THEN 7 DAYS OFF)
  9. LETROZOLE. [Suspect]
     Active Substance: LETROZOLE
     Dosage: UNK
  10. ALPHA LIPOIC [Concomitant]
     Dosage: UNK, (300-333M)
  11. COENZYME Q10 [Concomitant]
     Active Substance: UBIDECARENONE
     Dosage: 400 MG, UNK
  12. VITAMIN B12 [Concomitant]
     Active Substance: CYANOCOBALAMIN
     Dosage: 100 UG, UNK
  13. VITAMIN D [Concomitant]
     Active Substance: CHOLECALCIFEROL
     Dosage: 1000 IU, UNK
  14. FOLIC ACID. [Concomitant]
     Active Substance: FOLIC ACID
     Dosage: 400 UG, UNK
  15. VITAMIN C [Concomitant]
     Active Substance: ASCORBIC ACID
     Dosage: 1000 MG, UNK
  16. VITAMIN E [Concomitant]
     Active Substance: .ALPHA.-TOCOPHEROL
     Dosage: 1000 IU, UNK
  17. COLPERMIN [Concomitant]
     Active Substance: PEPPERMINT OIL
     Dosage: 5 MG, UNK
  18. FISH OIL [Concomitant]
     Active Substance: FISH OIL
     Dosage: 1000 MG, UNK
  19. VITAMIN A [Concomitant]
     Active Substance: VITAMIN A
     Dosage: 10000 IU, UNK
  20. VITAMIN B-6 [Concomitant]
     Active Substance: PYRIDOXINE
     Dosage: 100 MG, UNK
  21. ZINC. [Concomitant]
     Active Substance: ZINC
     Dosage: 100 MG, UNK
  22. FASLODEX [Concomitant]
     Active Substance: FULVESTRANT
     Dosage: UNK
  23. CHOLINE CITRATE [Concomitant]
     Dosage: 650 MG, UNK

REACTIONS (6)
  - Fatigue [Unknown]
  - Decreased appetite [Unknown]
  - Dry skin [Unknown]
  - Dyspnoea [Unknown]
  - Dyspepsia [Not Recovered/Not Resolved]
  - Dysgeusia [Unknown]
